FAERS Safety Report 12893230 (Version 1)
Quarter: 2016Q4

REPORT INFORMATION
  Report Type: Spontaneous
  Country: US (occurrence: US)
  Receive Date: 20161027
  Receipt Date: 20161027
  Transmission Date: 20170207
  Serious: Yes (Disabling, Other)
  Sender: FDA-Public Use
  Company Number: None

PATIENT
  Age: 27 Year
  Sex: Male
  Weight: 97.98 kg

DRUGS (12)
  1. NOTRIPTYLIN [Concomitant]
  2. QUETIAPINE-GENERIC FOR SEROQUEL [Suspect]
     Active Substance: QUETIAPINE
     Indication: DEPRESSION
     Dosage: 2, 50MG TABS AT BEDTIME MOUTH
     Route: 048
     Dates: start: 20151209, end: 20160915
  3. PROZAC [Concomitant]
     Active Substance: FLUOXETINE HYDROCHLORIDE
  4. TIZANIDINE. [Concomitant]
     Active Substance: TIZANIDINE
  5. PRAZOSIN [Concomitant]
     Active Substance: PRAZOSIN
  6. QUETIAPINE-GENERIC FOR SEROQUEL [Suspect]
     Active Substance: QUETIAPINE
     Indication: ANXIETY
     Dosage: 2, 50MG TABS AT BEDTIME MOUTH
     Route: 048
     Dates: start: 20151209, end: 20160915
  7. MELATONIN [Concomitant]
     Active Substance: MELATONIN
  8. QUETIAPINE-GENERIC FOR SEROQUEL [Suspect]
     Active Substance: QUETIAPINE
     Indication: INSOMNIA
     Dosage: 2, 50MG TABS AT BEDTIME MOUTH
     Route: 048
     Dates: start: 20151209, end: 20160915
  9. DILANTIN [Concomitant]
     Active Substance: PHENYTOIN
  10. CLONAZEPAM. [Concomitant]
     Active Substance: CLONAZEPAM
  11. TOPAMAX [Concomitant]
     Active Substance: TOPIRAMATE
  12. NIACIN. [Concomitant]
     Active Substance: NIACIN

REACTIONS (9)
  - Gynaecomastia [None]
  - Galactorrhoea [None]
  - Blood cholesterol increased [None]
  - Hypertension [None]
  - Blood testosterone decreased [None]
  - Breast tenderness [None]
  - Weight increased [None]
  - Hot flush [None]
  - Hyperprolactinaemia [None]

NARRATIVE: CASE EVENT DATE: 20160915
